FAERS Safety Report 24584361 (Version 1)
Quarter: 2024Q4

REPORT INFORMATION
  Report Type: Spontaneous
  Country: CN (occurrence: CN)
  Receive Date: 20241106
  Receipt Date: 20241106
  Transmission Date: 20250115
  Serious: Yes (Hospitalization, Other)
  Sender: BAXTER
  Company Number: None

PATIENT
  Age: 56 Year
  Sex: Female
  Weight: 56 kg

DRUGS (11)
  1. CYCLOPHOSPHAMIDE [Suspect]
     Active Substance: CYCLOPHOSPHAMIDE
     Indication: Follicular lymphoma
     Dosage: 1200 MG, ONE TIME IN ONE DAY, DAY 1, Q21D, AS A PART OF CHOP REGIMEN
     Route: 041
     Dates: start: 20241010, end: 20241010
  2. CYCLOPHOSPHAMIDE [Suspect]
     Active Substance: CYCLOPHOSPHAMIDE
     Indication: Chemotherapy
  3. RITUXIMAB [Suspect]
     Active Substance: RITUXIMAB
     Indication: Follicular lymphoma
     Dosage: 100 MG, ONE TIME IN ONE DAY
     Route: 041
     Dates: start: 20241008, end: 20241008
  4. RITUXIMAB [Suspect]
     Active Substance: RITUXIMAB
     Indication: Targeted cancer therapy
     Dosage: 500 MG, ONE TIME IN ONE DAY, ROUTE: INJECTION IN PUMP
     Route: 050
     Dates: start: 20241009, end: 20241009
  5. EPIRUBICIN HYDROCHLORIDE [Suspect]
     Active Substance: EPIRUBICIN HYDROCHLORIDE
     Indication: Follicular lymphoma
     Dosage: 140 MG, ONE TIME IN ONE DAY, DAY 1, Q21D, AS A PART OF CHOP REGIMEN
     Route: 041
     Dates: start: 20241010, end: 20241010
  6. EPIRUBICIN HYDROCHLORIDE [Suspect]
     Active Substance: EPIRUBICIN HYDROCHLORIDE
     Indication: Chemotherapy
  7. PREDNISONE ACETATE [Suspect]
     Active Substance: PREDNISONE ACETATE
     Indication: Follicular lymphoma
     Dosage: 100 MG, ONE TIME IN ONE DAY, DAY 1 TO 5, Q21D, AS A PART OF CHOP REGIMEN
     Route: 048
     Dates: start: 20241010, end: 20241014
  8. PREDNISONE ACETATE [Suspect]
     Active Substance: PREDNISONE ACETATE
     Indication: Chemotherapy
  9. VINCRISTINE SULFATE [Suspect]
     Active Substance: VINCRISTINE SULFATE
     Indication: Follicular lymphoma
     Dosage: 2 MG, ONE TIME IN ONE DAY, DAY 1, Q21D, AS A PART OF CHOP REGIMEN
     Route: 041
     Dates: start: 20241010, end: 20241010
  10. VINCRISTINE SULFATE [Suspect]
     Active Substance: VINCRISTINE SULFATE
     Indication: Chemotherapy
  11. LEUCOGEN [Suspect]
     Active Substance: LEUCOGEN
     Dosage: 20 MG, 3/DAY, START DATE: OCT-2024 (AFTER DISCHARGE ON 14-OCT-2024, THE PATIENT TOOK REGULARLY)
     Route: 065

REACTIONS (6)
  - Dysphonia [Unknown]
  - Temperature intolerance [Unknown]
  - Myelosuppression [Recovered/Resolved]
  - Pyrexia [Unknown]
  - Asthenia [Unknown]
  - Cough [Unknown]

NARRATIVE: CASE EVENT DATE: 20241021
